FAERS Safety Report 6133425-7 (Version None)
Quarter: 2009Q1

REPORT INFORMATION
  Report Type: 
  Country: None (occurrence: None)
  Receive Date: 20090326
  Receipt Date: 20090311
  Transmission Date: 20090719
  Serious: Yes (Death, Hospitalization)
  Sender: FDA-Public Use
  Company Number: NL-PFIZER INC-2009186367

PATIENT

DRUGS (1)
  1. HYDROXYZINE HCL [Suspect]

REACTIONS (1)
  - PORPHYRIA ACUTE [None]
